FAERS Safety Report 21663862 (Version 1)
Quarter: 2022Q4

REPORT INFORMATION
  Report Type: Spontaneous
  Country: US (occurrence: US)
  Receive Date: 20221130
  Receipt Date: 20221130
  Transmission Date: 20230112
  Serious: Yes (Other)
  Sender: FDA-Public Use
  Company Number: US-002147023-NVSC2022US277643

PATIENT
  Sex: Female

DRUGS (3)
  1. CLOFAZIMINE [Suspect]
     Active Substance: CLOFAZIMINE
     Indication: Mycobacterium avium complex infection
     Dosage: UNK
     Route: 065
  2. ALBUTEROL [Concomitant]
     Active Substance: ALBUTEROL
     Indication: Product used for unknown indication
     Dosage: 3 ML (2.5 MG) (DISP 180 ML), BID (BY NEBULIZATION) (NEBULIZING SOLUTION)
     Dates: start: 20221020
  3. SODIUM CHLORIDE [Concomitant]
     Active Substance: SODIUM CHLORIDE
     Indication: Product used for unknown indication
     Dosage: 4 ML, BID (BY NEBULIZER 240 ML)
     Dates: start: 20221020

REACTIONS (3)
  - Mycobacterium avium complex infection [Unknown]
  - Ill-defined disorder [Unknown]
  - Product use in unapproved indication [Unknown]
